FAERS Safety Report 4325341-8 (Version None)
Quarter: 2004Q1

REPORT INFORMATION
  Report Type: 
  Country: None (occurrence: None)
  Receive Date: 20040329
  Receipt Date: 20040316
  Transmission Date: 20041129
  Serious: Yes (Other)
  Sender: FDA-Public Use
  Company Number: 200410861EU

PATIENT
  Age: 63 Year
  Sex: Female

DRUGS (10)
  1. DOCETAXEL [Suspect]
     Indication: BREAST CANCER
     Dosage: DOSE: 114-115
     Route: 042
     Dates: start: 20021219, end: 20030405
  2. ADRIAMYCIN PFS [Suspect]
     Indication: BREAST CANCER
     Route: 042
     Dates: start: 20021219, end: 20030405
  3. CYCLOPHOSPHAMIDE [Suspect]
     Indication: BREAST CANCER
     Dosage: DOSE: 750-775
     Route: 042
     Dates: start: 20021219, end: 20030405
  4. NEUPOGEN [Concomitant]
     Route: 058
  5. CIPROFLOXACIN [Concomitant]
  6. TARIVID ORAL [Concomitant]
  7. GLAZIDIM [Concomitant]
  8. TARGOCID [Concomitant]
     Route: 042
  9. TAMOXIFEN CITRATE [Concomitant]
     Route: 048
     Dates: start: 20030623
  10. RADIOTHERAPY [Concomitant]
     Dates: start: 20030515, end: 20030623

REACTIONS (2)
  - ACUTE MYELOID LEUKAEMIA [None]
  - UPPER RESPIRATORY TRACT INFECTION [None]
